FAERS Safety Report 8342784-6 (Version None)
Quarter: 2012Q2

REPORT INFORMATION
  Report Type: 
  Country: None (occurrence: None)
  Receive Date: 20120503
  Receipt Date: 20120420
  Transmission Date: 20120825
  Serious: Yes (Death)
  Sender: FDA-Public Use
  Company Number: 2012MA005260

PATIENT
  Sex: Female

DRUGS (3)
  1. PACLITAXEL [Suspect]
     Indication: OVARIAN CANCER
     Dosage: 175 MG/M^2, QW3
     Dates: start: 20060301
  2. PACLITAXEL [Suspect]
     Indication: CHEMOTHERAPY
     Dosage: 175 MG/M^2, QW3
     Dates: start: 20060301
  3. CARBOPLATIN [Concomitant]

REACTIONS (8)
  - DYSPNOEA [None]
  - EPISTAXIS [None]
  - FATIGUE [None]
  - ASTHENIA [None]
  - PANCYTOPENIA [None]
  - PLEURAL EFFUSION [None]
  - MALIGNANT ASCITES [None]
  - DIZZINESS [None]
